FAERS Safety Report 9325106 (Version 1)
Quarter: 2013Q2

REPORT INFORMATION
  Report Type: Spontaneous
  Country: US (occurrence: US)
  Receive Date: 20130603
  Receipt Date: 20130603
  Transmission Date: 20140414
  Serious: Yes (Other)
  Sender: FDA-Public Use
  Company Number: US-B.I. PHARMACEUTICALS,INC./RIDGEFIELD-2013-RO-00841RO

PATIENT
  Age: 62 Year
  Sex: Male

DRUGS (9)
  1. AMLODIPINE [Suspect]
  2. CLOPIDOGREL [Suspect]
  3. SIMVASTATIN [Suspect]
  4. RANITIDINE [Suspect]
  5. ISOSORBIDE DINITRATE [Suspect]
  6. LISINOPRIL [Suspect]
  7. METOPROLOL [Suspect]
  8. ASPIRIN [Suspect]
  9. FENOFIBRATE [Suspect]

REACTIONS (1)
  - Cutaneous lupus erythematosus [Recovered/Resolved]
